FAERS Safety Report 20691662 (Version 1)
Quarter: 2022Q2

REPORT INFORMATION
  Report Type: Spontaneous
  Country: US (occurrence: None)
  Receive Date: 20220407
  Receipt Date: 20220407
  Transmission Date: 20220721
  Serious: Yes (Hospitalization)
  Sender: FDA-Public Use
  Company Number: None

PATIENT
  Sex: Male
  Weight: 69.8 kg

DRUGS (3)
  1. CISPLATIN [Suspect]
     Active Substance: CISPLATIN
     Dates: start: 20220328, end: 20220401
  2. IFOSFAMIDE [Suspect]
     Active Substance: IFOSFAMIDE
     Dates: start: 20220328, end: 20220401
  3. TAXOL [Suspect]
     Active Substance: PACLITAXEL
     Dates: start: 20220328, end: 202203

REACTIONS (11)
  - Chills [None]
  - White blood cell count decreased [None]
  - Anaemia [None]
  - Thrombocytopenia [None]
  - Hyponatraemia [None]
  - Hypochloraemia [None]
  - Hypertransaminasaemia [None]
  - Rhinorrhoea [None]
  - Productive cough [None]
  - Human metapneumovirus test positive [None]
  - Febrile neutropenia [None]

NARRATIVE: CASE EVENT DATE: 20220405
